FAERS Safety Report 8478271-4 (Version None)
Quarter: 2012Q2

REPORT INFORMATION
  Report Type: 
  Country: None (occurrence: None)
  Receive Date: 20120629
  Receipt Date: 20120619
  Transmission Date: 20120825
  Serious: Yes (Other)
  Sender: FDA-Public Use
  Company Number: ES-JNJFOC-20120613505

PATIENT
  Age: 86 Year
  Sex: Female

DRUGS (2)
  1. PALEXIA RETARD [Suspect]
     Indication: OSTEONECROSIS
     Route: 048
     Dates: start: 20120525, end: 20120531
  2. BUPRENORPHINE [Concomitant]
     Indication: ARTHRALGIA
     Route: 062
     Dates: end: 20120501

REACTIONS (4)
  - HEAD INJURY [None]
  - CONFUSIONAL STATE [None]
  - FALL [None]
  - GAIT DISTURBANCE [None]
